FAERS Safety Report 9674909 (Version 2)
Quarter: 2013Q4

REPORT INFORMATION
  Report Type: Spontaneous
  Country: IT (occurrence: IT)
  Receive Date: 20131107
  Receipt Date: 20131114
  Transmission Date: 20140711
  Serious: Yes (Hospitalization)
  Sender: FDA-Public Use
  Company Number: IT-JNJFOC-20131100229

PATIENT
  Age: 48 Year
  Sex: Female

DRUGS (4)
  1. SIMPONI [Suspect]
     Indication: PSORIATIC ARTHROPATHY
     Route: 058
     Dates: start: 20110418, end: 20130914
  2. CICLOSPORIN [Concomitant]
     Route: 065
  3. METHOTREXATE [Concomitant]
     Dosage: 15MG/2ML
     Route: 065
  4. MEDROL [Concomitant]
     Route: 065

REACTIONS (1)
  - Pulmonary tuberculosis [Recovering/Resolving]
